FAERS Safety Report 5822226-2 (Version None)
Quarter: 2008Q3

REPORT INFORMATION
  Report Type: 
  Country: None (occurrence: None)
  Receive Date: 20080725
  Receipt Date: 20080523
  Transmission Date: 20090109
  Serious: No
  Sender: FDA-Public Use
  Company Number: US-AMGEN-KDL273217

PATIENT
  Sex: Female
  Weight: 141.6 kg

DRUGS (7)
  1. PROCRIT [Suspect]
     Indication: RENAL FAILURE CHRONIC
     Dates: start: 20080306
  2. LEVAQUIN [Concomitant]
     Dates: start: 20080306, end: 20080313
  3. LYRICA [Concomitant]
  4. IRON [Concomitant]
  5. CALCIUM [Concomitant]
  6. VITAMIN B-12 [Concomitant]
  7. LIBRAX [Concomitant]

REACTIONS (2)
  - ADVERSE DRUG REACTION [None]
  - ECCHYMOSIS [None]
